FAERS Safety Report 17565318 (Version 1)
Quarter: 2020Q1

REPORT INFORMATION
  Report Type: Spontaneous
  Country: US (occurrence: US)
  Receive Date: 20200320
  Receipt Date: 20200320
  Transmission Date: 20200409
  Serious: Yes (Other)
  Sender: FDA-Public Use
  Company Number: None

PATIENT
  Age: 60 Year
  Sex: Female
  Weight: 48.15 kg

DRUGS (5)
  1. MG [Concomitant]
     Active Substance: MAGNESIUM
  2. VITAMIN D [Concomitant]
     Active Substance: VITAMIN D NOS
  3. CREST PRO-HEALTH CLINICAL [Suspect]
     Active Substance: CETYLPYRIDINIUM CHLORIDE
     Indication: DENTAL CARE
     Route: 048
  4. CA [Concomitant]
  5. L-LYSINE [Concomitant]
     Active Substance: LYSINE

REACTIONS (5)
  - Chapped lips [None]
  - Hypoaesthesia [None]
  - Lip dry [None]
  - Lip swelling [None]
  - Cheilitis [None]

NARRATIVE: CASE EVENT DATE: 20200315
